FAERS Safety Report 6435251-8 (Version None)
Quarter: 2009Q4

REPORT INFORMATION
  Report Type: 
  Country: None (occurrence: None)
  Receive Date: 20091110
  Receipt Date: 20091106
  Transmission Date: 20100525
  Serious: Yes (Death)
  Sender: FDA-Public Use
  Company Number: US-ELI_LILLY_AND_COMPANY-US200908006138

PATIENT
  Sex: Male

DRUGS (6)
  1. BYETTA [Suspect]
     Indication: TYPE 2 DIABETES MELLITUS
     Dosage: 5 UG, 2/D
     Route: 058
     Dates: start: 20060105, end: 20060203
  2. BYETTA [Suspect]
     Dosage: 10 UG, 2/D
     Route: 058
     Dates: start: 20060203
  3. ASPIRIN [Concomitant]
     Dosage: UNK, DAILY (1/D)
  4. LIPITOR [Concomitant]
     Dosage: 20 MG, DAILY (1/D)
     Route: 048
  5. HUMALOG [Concomitant]
     Dosage: 10 U, 2/D
     Route: 058
  6. VIAGRA [Concomitant]
     Dosage: 100 MG, AS NEEDED

REACTIONS (5)
  - ABDOMINAL PAIN [None]
  - NAUSEA [None]
  - OCULAR CANCER METASTATIC [None]
  - OFF LABEL USE [None]
  - WEIGHT DECREASED [None]
